FAERS Safety Report 9445164 (Version 3)
Quarter: 2013Q3

REPORT INFORMATION
  Report Type: Spontaneous
  Country: JP (occurrence: JP)
  Receive Date: 20130807
  Receipt Date: 20130823
  Transmission Date: 20140515
  Serious: Yes (Hospitalization)
  Sender: FDA-Public Use
  Company Number: JP-VERTEX PHARMACEUTICALS INC-2013-008603

PATIENT
  Age: 61 Year
  Sex: Female

DRUGS (5)
  1. TELAVIC [Suspect]
     Indication: CHRONIC HEPATITIS C
     Dosage: 1500 MG, QD
     Route: 048
     Dates: start: 20130703, end: 20130731
  2. RIBAVIRIN [Concomitant]
     Dosage: 600 MG, QD
     Route: 048
     Dates: start: 20130703, end: 20130723
  3. RIBAVIRIN [Concomitant]
     Dosage: 400 MG, QD
     Route: 048
     Dates: start: 20130724
  4. PEGINTERFERON ALFA-2B [Concomitant]
     Dosage: 1.5 ?G/KG, QW
     Route: 058
     Dates: start: 20130703
  5. PREDONINE [Concomitant]
     Dosage: 60 MG, QD
     Route: 042
     Dates: start: 20130731

REACTIONS (1)
  - Rash [Recovered/Resolved]
